FAERS Safety Report 4958854-6 (Version None)
Quarter: 2006Q1

REPORT INFORMATION
  Report Type: 
  Country: None (occurrence: None)
  Receive Date: 20060324
  Receipt Date: 20060320
  Transmission Date: 20060701
  Serious: Yes (Hospitalization, Disabling)
  Sender: FDA-Public Use
  Company Number: 200610773GDS

PATIENT
  Age: 66 Year
  Sex: Female
  Weight: 74.5 kg

DRUGS (8)
  1. SORAFENIB [Suspect]
     Dosage: 800 MG, TOTAL DAILY, ORAL; 400 MG, TOTAL DAILY, ORAL
     Route: 048
     Dates: start: 20051209, end: 20051222
  2. SORAFENIB [Suspect]
     Dosage: 800 MG, TOTAL DAILY, ORAL; 400 MG, TOTAL DAILY, ORAL
     Route: 048
     Dates: start: 20051223, end: 20060105
  3. SORAFENIB [Suspect]
     Indication: METASTATIC RENAL CELL CARCINOMA
     Dosage: 800 MG, TOTAL DAILY, ORAL
     Route: 048
  4. AMARYL [Concomitant]
  5. PRESTARTUM [Concomitant]
  6. AMLOPIN [Concomitant]
  7. KETONAL [Concomitant]
  8. DURAGESIC-100 [Concomitant]

REACTIONS (4)
  - BENIGN PANCREATIC NEOPLASM [None]
  - HEPATIC FAILURE [None]
  - JAUNDICE CHOLESTATIC [None]
  - NEOPLASM PROGRESSION [None]
